FAERS Safety Report 6697840-5 (Version None)
Quarter: 2010Q2

REPORT INFORMATION
  Report Type: 
  Country: None (occurrence: None)
  Receive Date: 20100427
  Receipt Date: 20100416
  Transmission Date: 20101027
  Serious: Yes (Hospitalization)
  Sender: FDA-Public Use
  Company Number: US-BIOGENIDEC-2010BI010092

PATIENT
  Age: 43 Year
  Sex: Male

DRUGS (11)
  1. AVONEX [Suspect]
     Indication: MULTIPLE SCLEROSIS
     Route: 030
     Dates: start: 20010908, end: 20030528
  2. AVONEX [Suspect]
     Route: 030
  3. BACLOFEN [Concomitant]
     Route: 048
  4. COPAXONE [Concomitant]
  5. SOMA [Concomitant]
     Dates: end: 20091118
  6. FLOMAX [Concomitant]
  7. OXYCODONE HCL [Concomitant]
  8. NALTREXONE HYDROCHLORIDE [Concomitant]
  9. DULOXETINE HYDROCHLORIDE [Concomitant]
  10. VITAMIN B-12 [Concomitant]
  11. VITAMIN D3 [Concomitant]

REACTIONS (7)
  - ABASIA [None]
  - CONFUSIONAL STATE [None]
  - DRUG INEFFECTIVE [None]
  - MULTIPLE SCLEROSIS RELAPSE [None]
  - MUSCULOSKELETAL STIFFNESS [None]
  - OVERDOSE [None]
  - PROGRESSIVE MULTIPLE SCLEROSIS [None]
